FAERS Safety Report 4877849-4 (Version None)
Quarter: 2006Q1

REPORT INFORMATION
  Report Type: 
  Country: None (occurrence: None)
  Receive Date: 20060111
  Receipt Date: 20050415
  Transmission Date: 20060701
  Serious: Yes (Hospitalization)
  Sender: FDA-Public Use
  Company Number: DE-BRISTOL-MYERS SQUIBB COMPANY-12937082

PATIENT
  Age: 29 Year
  Sex: Male
  Weight: 115 kg

DRUGS (4)
  1. ABILIFY [Suspect]
     Indication: SCHIZOPHRENIA
     Dosage: 15 MG 19JUL04 TO 26SEP04; 10 MG 27SEP04; 15 MG 07MAR05 TO 19JUN05
     Route: 048
     Dates: start: 20040719, end: 20050619
  2. ZELDOX [Concomitant]
     Dosage: TAPERING FROM 17-JUN-04 TO 19-JUN-04
     Dates: end: 20040619
  3. ST JOHN WORT [Concomitant]
  4. L-THYROXINE [Concomitant]
     Dosage: DOSE VALUE:  100 UG

REACTIONS (8)
  - BUNDLE BRANCH BLOCK RIGHT [None]
  - PHOTOPSIA [None]
  - PSYCHOTIC DISORDER [None]
  - RESTLESSNESS [None]
  - SEXUAL DYSFUNCTION [None]
  - SLEEP DISORDER [None]
  - SUICIDAL IDEATION [None]
  - TREATMENT NONCOMPLIANCE [None]
